FAERS Safety Report 4795374-6 (Version None)
Quarter: 2005Q4

REPORT INFORMATION
  Report Type: 
  Country: None (occurrence: None)
  Receive Date: 20051007
  Receipt Date: 20051007
  Transmission Date: 20060501
  Serious: No
  Sender: FDA-Public Use
  Company Number: None

PATIENT
  Age: 61 Year
  Sex: Female
  Weight: 75.7507 kg

DRUGS (2)
  1. CARBOPLATIN 10MG/ML APP [Suspect]
     Dosage: 768MG EVERY 3 WEEKS IV
     Route: 042
     Dates: start: 20050725, end: 20050927
  2. TAXOL [Concomitant]

REACTIONS (5)
  - CHEST DISCOMFORT [None]
  - FEELING ABNORMAL [None]
  - FLUSHING [None]
  - HYPERTENSION [None]
  - INFUSION RELATED REACTION [None]
